FAERS Safety Report 4338306-7 (Version None)
Quarter: 2004Q2

REPORT INFORMATION
  Report Type: 
  Country: None (occurrence: None)
  Receive Date: 20040413
  Receipt Date: 20040413
  Transmission Date: 20050107
  Serious: Yes (Other)
  Sender: FDA-Public Use
  Company Number: None

PATIENT
  Age: 33 Year
  Sex: Male
  Weight: 145.151 kg

DRUGS (3)
  1. ROBITUSSIN [Suspect]
     Dosage: FULL BOTTLE WHENEVER ORAL
     Route: 048
  2. ATENOLOL [Concomitant]
  3. ATACAND [Concomitant]

REACTIONS (2)
  - EUPHORIC MOOD [None]
  - MEDICATION ERROR [None]
